FAERS Safety Report 9270881 (Version 1)
Quarter: 2013Q2

REPORT INFORMATION
  Report Type: Spontaneous
  Country: BE (occurrence: BE)
  Receive Date: 20130506
  Receipt Date: 20130506
  Transmission Date: 20140414
  Serious: Yes (Death, Life-Threatening, Other)
  Sender: FDA-Public Use
  Company Number: BE-009507513-1305BEL001347

PATIENT
  Age: 77 Year
  Sex: Male

DRUGS (1)
  1. FOSAVANCE [Suspect]
     Indication: OSTEOPOROSIS
     Dosage: UNK UNK, QW
     Route: 048
     Dates: start: 20111226, end: 20120425

REACTIONS (8)
  - Cardiac arrest [Fatal]
  - Weight decreased [Recovered/Resolved]
  - Respiratory disorder [Not Recovered/Not Resolved]
  - Fatigue [Not Recovered/Not Resolved]
  - Movement disorder [Unknown]
  - General physical health deterioration [Unknown]
  - Muscle atrophy [Unknown]
  - Cardiac disorder [Unknown]
